FAERS Safety Report 9192912 (Version 2)
Quarter: 2013Q2

REPORT INFORMATION
  Report Type: Spontaneous
  Country: US (occurrence: None)
  Receive Date: 20130325
  Receipt Date: 20130409
  Transmission Date: 20140414
  Serious: Yes (Disabling)
  Sender: FDA-Public Use
  Company Number: AUR-APL-2013-02435

PATIENT
  Age: 79 Year
  Sex: Female
  Weight: 47.63 kg

DRUGS (6)
  1. LEVOFLOXACIN [Suspect]
     Indication: DIVERTICULITIS
     Dosage: (500 MG, 1 IN 1 D)
     Dates: start: 20130310, end: 20130312
  2. LEVOFLOXACIN [Suspect]
     Indication: COLITIS
     Dosage: (500 MG, 1 IN 1 D)
     Dates: start: 20130310, end: 20130312
  3. AMOXICILLIN + CLAVULANIC ACID [Suspect]
  4. BABY ASPIRIN (ACETYLSALICYLIC ACID) [Concomitant]
  5. METRONIDAZOLE (METRONIDAZOLE) [Concomitant]
  6. PLAVIX (CLOPIDOGREL) [Concomitant]

REACTIONS (3)
  - Tendon pain [None]
  - Gait disturbance [None]
  - Rash [None]
